FAERS Safety Report 6239597-8 (Version None)
Quarter: 2009Q2

REPORT INFORMATION
  Report Type: 
  Country: None (occurrence: None)
  Receive Date: 20090622
  Receipt Date: 20090616
  Transmission Date: 20091009
  Serious: Yes (Hospitalization)
  Sender: FDA-Public Use
  Company Number: DE-ABBOTT-09P-062-0571290-00

PATIENT
  Sex: Female
  Weight: 53 kg

DRUGS (4)
  1. HUMIRA [Suspect]
     Indication: COLITIS
     Route: 058
     Dates: start: 20080925, end: 20081203
  2. CLAVERSAL [Concomitant]
     Indication: COLITIS
     Route: 048
     Dates: start: 20061101, end: 20081203
  3. SULFASALAZIN [Concomitant]
     Indication: COLITIS
  4. CORTISONE [Concomitant]
     Indication: COLITIS
     Route: 048

REACTIONS (2)
  - PSORIASIS [None]
  - PUSTULAR PSORIASIS [None]
